FAERS Safety Report 23565276 (Version 1)
Quarter: 2024Q1

REPORT INFORMATION
  Report Type: Spontaneous
  Country: US (occurrence: None)
  Receive Date: 20240223
  Receipt Date: 20240223
  Transmission Date: 20240410
  Serious: Yes (Other)
  Sender: FDA-Public Use
  Company Number: None

PATIENT
  Age: 45 Year
  Sex: Female
  Weight: 94.6 kg

DRUGS (8)
  1. INFED [Suspect]
     Active Substance: IRON DEXTRAN
     Indication: Iron deficiency anaemia
     Dosage: OTHER FREQUENCY : ONCE;?
     Route: 042
     Dates: start: 20240222, end: 20240222
  2. Amitriptyline 50 mg PO daily [Concomitant]
     Dates: start: 20240215
  3. Bupropion 450 mg PO daily [Concomitant]
     Dates: start: 20230227
  4. Fentanyl 25 mcg/hr transdermal patch every 72 hours [Concomitant]
     Dates: start: 20240122
  5. Omeprazole 40 mg PO daily [Concomitant]
     Dates: start: 20230304
  6. Pregabalin 150 mg PO daily [Concomitant]
     Dates: start: 20230302
  7. Symproic 0.2 mg PO daily [Concomitant]
     Dates: start: 20230309
  8. Tizanidine 4 mg PO daily [Concomitant]
     Dates: start: 20230328

REACTIONS (3)
  - Flushing [None]
  - Upper respiratory tract congestion [None]
  - Nasal congestion [None]

NARRATIVE: CASE EVENT DATE: 20240222
